FAERS Safety Report 9640674 (Version 2)
Quarter: 2013Q4

REPORT INFORMATION
  Report Type: Report from Study
  Country: CZ (occurrence: CZ)
  Receive Date: 20131023
  Receipt Date: 20131023
  Transmission Date: 20140711
  Serious: Yes (Hospitalization, Other)
  Sender: FDA-Public Use
  Company Number: CZ-ASTRAZENECA-2013SE69306

PATIENT
  Age: 25722 Day
  Sex: Female

DRUGS (11)
  1. AZD6140 [Suspect]
     Indication: CORONARY ARTERY DISEASE
     Route: 048
     Dates: start: 20110601, end: 20130906
  2. SECTRAL [Concomitant]
     Indication: CORONARY ARTERY DISEASE
     Route: 048
  3. MODURETIC [Concomitant]
     Indication: HYPERTENSION
     Route: 048
  4. EUTHYROX [Concomitant]
     Indication: HYPOTHYROIDISM
     Route: 048
  5. PRESTARIUM NEO [Concomitant]
     Indication: CORONARY ARTERY DISEASE
     Route: 048
  6. SORTIS [Concomitant]
     Indication: HYPERLIPIDAEMIA
     Route: 048
  7. GANATON [Concomitant]
     Indication: DYSPEPSIA
     Route: 048
  8. HELICID [Concomitant]
     Indication: PROPHYLAXIS AGAINST GASTROINTESTINAL ULCER
     Route: 048
  9. AGEN [Concomitant]
     Indication: HYPERTENSION
     Route: 048
  10. ASA [Concomitant]
     Route: 048
     Dates: end: 20130906
  11. ASA [Concomitant]
     Route: 048
     Dates: start: 20130916

REACTIONS (1)
  - Colitis [Not Recovered/Not Resolved]
